FAERS Safety Report 23883535 (Version 3)
Quarter: 2024Q2

REPORT INFORMATION
  Report Type: Spontaneous
  Country: PL (occurrence: PL)
  Receive Date: 20240522
  Receipt Date: 20240627
  Transmission Date: 20240716
  Serious: Yes (Life-Threatening, Hospitalization)
  Sender: FDA-Public Use
  Company Number: PL-AMGEN-POLSP2024098258

PATIENT
  Age: 48 Year
  Sex: Male
  Weight: 65 kg

DRUGS (2)
  1. REPATHA [Suspect]
     Active Substance: EVOLOCUMAB
     Indication: Lipids abnormal
     Dosage: 150 MILLIGRAM, Q2WK
     Route: 058
     Dates: start: 20231003
  2. REPATHA [Suspect]
     Active Substance: EVOLOCUMAB
     Dosage: 150 MILLIGRAM, Q2WK
     Route: 058
     Dates: start: 20231003

REACTIONS (2)
  - Acute myocardial infarction [Recovered/Resolved]
  - Low density lipoprotein increased [Unknown]

NARRATIVE: CASE EVENT DATE: 20240507
